FAERS Safety Report 9970605 (Version 1)
Quarter: 2014Q1

REPORT INFORMATION
  Report Type: Report from Study
  Country: US (occurrence: US)
  Receive Date: 20140306
  Receipt Date: 20140306
  Transmission Date: 20141002
  Serious: No
  Sender: FDA-Public Use
  Company Number: US-ABBVIE-13P-163-1147786-00

PATIENT
  Age: 52 Year
  Sex: Female

DRUGS (4)
  1. HUMIRA [Suspect]
     Indication: CROHN^S DISEASE
     Dates: start: 201306
  2. CHOLESTYRAMINE [Concomitant]
     Indication: CROHN^S DISEASE
     Dosage: 1 PACK PER DAY
  3. DELZICOL [Concomitant]
     Indication: CROHN^S DISEASE
     Dosage: 6 PER DAY
  4. IMODIUM [Concomitant]
     Indication: CROHN^S DISEASE
     Dosage: 2 TO 3 PER DAY AS NEEDED

REACTIONS (2)
  - Injection site pain [Recovered/Resolved]
  - Injection site pain [Recovered/Resolved]
